FAERS Safety Report 14093409 (Version 1)
Quarter: 2017Q4

REPORT INFORMATION
  Report Type: Spontaneous
  Country: US (occurrence: US)
  Receive Date: 20171016
  Receipt Date: 20171016
  Transmission Date: 20180321
  Serious: Yes (Other)
  Sender: FDA-Public Use
  Company Number: US-B.I. PHARMACEUTICALS,INC./RIDGEFIELD-2017-BI-054758

PATIENT
  Age: 4 Decade
  Sex: Female

DRUGS (1)
  1. GLYXAMBI [Suspect]
     Active Substance: EMPAGLIFLOZIN\LINAGLIPTIN
     Indication: TYPE 2 DIABETES MELLITUS
     Dosage: FORM STRENGTH: 25MG/5MG;
     Route: 048

REACTIONS (3)
  - Intestinal obstruction [Recovered/Resolved]
  - Pancreatitis relapsing [Recovered/Resolved]
  - Cholelithiasis [Recovered/Resolved]
